FAERS Safety Report 17106232 (Version 1)
Quarter: 2019Q4

REPORT INFORMATION
  Report Type: Report from Study
  Country: IT (occurrence: IT)
  Receive Date: 20191203
  Receipt Date: 20191203
  Transmission Date: 20200122
  Serious: Yes (Other)
  Sender: FDA-Public Use
  Company Number: IT-PFIZER INC-2019517276

PATIENT
  Age: 19 Year
  Sex: Male

DRUGS (3)
  1. XANAX [Suspect]
     Active Substance: ALPRAZOLAM
     Indication: INTENTIONAL OVERDOSE
     Dosage: 2 DF, SINGLE
     Route: 048
     Dates: start: 20191112, end: 20191112
  2. LEXOTAN [Suspect]
     Active Substance: BROMAZEPAM
     Indication: INTENTIONAL OVERDOSE
     Dosage: 3 DF, SINGLE
     Route: 048
     Dates: start: 20191112, end: 20191112
  3. TRAMADOL HYDROCHLORIDE. [Suspect]
     Active Substance: TRAMADOL HYDROCHLORIDE
     Indication: INTENTIONAL OVERDOSE
     Dosage: 8 DF, SINGLE
     Route: 048
     Dates: start: 20191112, end: 20191112

REACTIONS (2)
  - Asthenia [Recovering/Resolving]
  - Malaise [Recovering/Resolving]

NARRATIVE: CASE EVENT DATE: 20191112
